FAERS Safety Report 24458004 (Version 1)
Quarter: 2024Q4

REPORT INFORMATION
  Report Type: Spontaneous
  Country: US (occurrence: US)
  Receive Date: 20241018
  Receipt Date: 20241018
  Transmission Date: 20250115
  Serious: No
  Sender: ROCHE
  Company Number: US-ROCHE-10000098277

PATIENT
  Age: 73 Year
  Sex: Male
  Weight: 83.91 kg

DRUGS (25)
  1. AVASTIN [Suspect]
     Active Substance: BEVACIZUMAB
     Indication: Hepatocellular carcinoma
     Dosage: MORE DOSAGE INFORMATION: STARTED 6 MONTHS AFTER DIAGNOSIS OF CANCER.
     Route: 042
     Dates: start: 20230201
  2. TOBEMSTOMIG [Suspect]
     Active Substance: TOBEMSTOMIG
     Indication: Hepatocellular carcinoma
     Route: 042
     Dates: start: 20230201
  3. CHOLESTYRAMINE [Suspect]
     Active Substance: CHOLESTYRAMINE
     Indication: Lichen planus
     Route: 048
     Dates: start: 2015
  4. MAGNESIUM CITRATE [Suspect]
     Active Substance: MAGNESIUM CITRATE
     Indication: Constipation
     Route: 065
  5. ATORVASTATIN [Concomitant]
     Active Substance: ATORVASTATIN
     Indication: Arteriosclerosis
     Dosage: MORE DOSAGE INFORMATION: STARTED OVER 4 YEARS AGO.
     Route: 048
  6. PANTOPRAZOLE [Concomitant]
     Active Substance: PANTOPRAZOLE
     Indication: Dyspepsia
     Route: 048
     Dates: start: 2019
  7. DOCUSATE [Concomitant]
     Active Substance: DOCUSATE
     Indication: Constipation
     Dosage: TAKES AS NEEDED.
     Route: 048
  8. RIFAMPIN [Concomitant]
     Active Substance: RIFAMPIN
     Indication: Helicobacter infection
     Dosage: MORE DOSAGE INFORMATION: STARTED 2 YEARS AGO.
     Route: 048
  9. LEVOTHYROXINE [Concomitant]
     Active Substance: LEVOTHYROXINE
     Route: 048
  10. LEVOTHYROXINE [Concomitant]
     Active Substance: LEVOTHYROXINE
     Route: 048
  11. OXYCODONE [Concomitant]
     Active Substance: OXYCODONE
     Indication: Spinal pain
     Dosage: MORE DOSAGE INFORMATION: TAKES ONLY AS NEEDED.
     Route: 048
  12. MAGNESIUM GLYCINATE [Concomitant]
     Active Substance: MAGNESIUM GLYCINATE
     Indication: Insomnia
     Route: 048
  13. BIOTIN [Concomitant]
     Active Substance: BIOTIN
     Dosage: MORE DOSAGE INFORMATION: STARTED 3 MONTHS AGO.
     Route: 048
  14. DEXAMETHASONE [Concomitant]
     Active Substance: DEXAMETHASONE
     Indication: Lichen planus
     Dosage: MORE DOSAGE INFORMATION: TAKES AS NEEDED
     Route: 048
  15. LYSINE [Concomitant]
     Active Substance: LYSINE
     Indication: Lichen planus
     Dosage: MORE DOSAGE INFORMATION: STARTED 6 MONTHS AGO
     Route: 048
  16. CLOBETASOL [Concomitant]
     Active Substance: CLOBETASOL
     Indication: Lichen planus
     Dosage: MORE DOSAGE INFORMATION: TAKES AS NEEDED SEVERITY OF MOUTH AND TONGUE, FISSURES. STARTED BEGINNING O
     Route: 061
     Dates: start: 202302
  17. BETAMETHASONE [Concomitant]
     Active Substance: BETAMETHASONE
     Indication: Psoriasis
     Dosage: MORE DOSAGE INFORMATION: AS NEEDED, STARTED AT TIME OF CLINICAL TRIAL
     Route: 061
  18. PERIDEX [CHLORHEXIDINE GLUCONATE] [Concomitant]
     Indication: Lichen planus
     Dosage: MORE DOSAGE INFORMATION: TOO STRONG MAKING MOUTH BURN STARTED FEW MONTHS AFTER CLINICAL TRIAL. AS NE
     Route: 048
  19. FLUTICASONE [Concomitant]
     Active Substance: FLUTICASONE
     Indication: Seasonal allergy
     Dosage: MORE DOSAGE INFORMATION: AS NEEDED USUALLY 1 SPRAY AND UP TO 2 SPRAYS. TAKES WITH AZALASTNE.
     Route: 045
  20. CLARITIN-D NOS [Concomitant]
     Active Substance: LORATADINE\PSEUDOEPHEDRINE SULFATE
     Indication: Seasonal allergy
     Dosage: MORE DOSAGE INFORMATION: STARTED YEARS AND WHEN INCR IT SINCE CLINICAL TRIAL?CLARITIDINE 10 AND PSEU
     Route: 048
  21. AZELASTINE [Concomitant]
     Active Substance: AZELASTINE
     Indication: Seasonal allergy
     Dosage: MORE DOSAGE INFORMATION: STARTED SAME TIME AS FLUTICASONE. TAKES 1 SPRAY 2 TIMES PER DAY.
     Route: 045
  22. ALOE VERA JUICE [Concomitant]
     Indication: Seasonal allergy
     Dosage: MORE DOSAGE INFORMATION: STARTED 6 OR 8 MONTHS AGO.  MOUTHFUL SWISH AND SWALLOW.
     Route: 048
  23. PATADAY [Concomitant]
     Active Substance: OLOPATADINE HYDROCHLORIDE
     Indication: Seasonal allergy
     Dosage: MORE DOSAGE INFORMATION: 1 DROP EACH EYE. STARTED AS NEEDED
     Route: 047
  24. LIDOCAINE [Concomitant]
     Active Substance: LIDOCAINE
     Indication: Lichen planus
     Dosage: MORE DOSAGE INFORMATION: STARTED IN THE PAST YEAR. TAKES AS NEEDED.
     Route: 061
  25. PHENIRAMINE NAPHAZOLINE [Concomitant]
     Indication: Seasonal allergy
     Dosage: MORE DOSAGE INFORMATION: AS NEEDED MULTIPLE TIMES PER DAY STARTED MANY YEARS AGO.
     Route: 047

REACTIONS (12)
  - Onychoclasis [Not Recovered/Not Resolved]
  - Seasonal allergy [Not Recovered/Not Resolved]
  - Headache [Not Recovered/Not Resolved]
  - Brain fog [Not Recovered/Not Resolved]
  - Insomnia [Not Recovered/Not Resolved]
  - Memory impairment [Not Recovered/Not Resolved]
  - Lichen planus [Not Recovered/Not Resolved]
  - Dyspnoea [Not Recovered/Not Resolved]
  - Dizziness [Not Recovered/Not Resolved]
  - Hypothyroidism [Recovered/Resolved]
  - Pain [Unknown]
  - Asthenia [Unknown]

NARRATIVE: CASE EVENT DATE: 20240101
